FAERS Safety Report 21013927 (Version 1)
Quarter: 2022Q2

REPORT INFORMATION
  Report Type: Spontaneous
  Country: US (occurrence: US)
  Receive Date: 20220627
  Receipt Date: 20220627
  Transmission Date: 20220721
  Serious: No
  Sender: FDA-Public Use
  Company Number: US-SANOFI-01156088

PATIENT
  Sex: Male

DRUGS (2)
  1. LANTUS SOLOSTAR [Suspect]
     Active Substance: INSULIN GLARGINE
     Indication: Type 2 diabetes mellitus
     Dosage: DRUG STRUCTURE DOSAGE : 70 UNITS DRUG INTERVAL DOSAGE : EACH DAY DRUG TREATMENT DURATION:
  2. LANTUS SOLOSTAR [Suspect]
     Active Substance: INSULIN GLARGINE
     Dosage: 75 U, QD

REACTIONS (3)
  - Blood glucose increased [Unknown]
  - Product storage error [Unknown]
  - Intentional product use issue [Unknown]
